FAERS Safety Report 21269637 (Version 2)
Quarter: 2022Q4

REPORT INFORMATION
  Report Type: Spontaneous
  Country: FR (occurrence: FR)
  Receive Date: 20220830
  Receipt Date: 20221209
  Transmission Date: 20230113
  Serious: Yes (Hospitalization, Other)
  Sender: FDA-Public Use
  Company Number: FR-NOVARTISPH-NVSC2022FR193354

PATIENT
  Age: 46 Year
  Sex: Male
  Weight: 64 kg

DRUGS (5)
  1. CYCLOSPORINE [Suspect]
     Active Substance: CYCLOSPORINE
     Indication: Product used for unknown indication
     Dosage: 150 MG
     Route: 048
     Dates: start: 20200115, end: 20200306
  2. CELLCEPT [Suspect]
     Active Substance: MYCOPHENOLATE MOFETIL
     Indication: Product used for unknown indication
     Dosage: 2 G
     Route: 048
     Dates: start: 20200115, end: 20200306
  3. OFLOXACIN [Concomitant]
     Active Substance: OFLOXACIN
     Indication: Product used for unknown indication
     Dosage: UNK
     Route: 065
     Dates: start: 20200305, end: 20200310
  4. LEVOFLOXACIN [Concomitant]
     Active Substance: LEVOFLOXACIN
     Indication: Product used for unknown indication
     Dosage: UNK
     Route: 065
     Dates: end: 20200310
  5. CYCLOPHOSPHAMIDE [Concomitant]
     Active Substance: CYCLOPHOSPHAMIDE
     Indication: Product used for unknown indication
     Dosage: 3650 MG
     Route: 042
     Dates: start: 20200113, end: 20200114

REACTIONS (14)
  - Cystitis haemorrhagic [Recovered/Resolved with Sequelae]
  - Cytomegalovirus infection [Recovered/Resolved with Sequelae]
  - Pyrexia [Unknown]
  - Haematuria [Unknown]
  - Lung disorder [Unknown]
  - Sinusitis [Unknown]
  - Cytopenia [Unknown]
  - Graft versus host disease in liver [Recovering/Resolving]
  - Cholestasis [Recovering/Resolving]
  - Retinal haemorrhage [Unknown]
  - Acute kidney injury [Recovering/Resolving]
  - Dysuria [Unknown]
  - Rhinovirus infection [Unknown]
  - Oral herpes [Unknown]

NARRATIVE: CASE EVENT DATE: 20200301
